FAERS Safety Report 9701966 (Version 1)
Quarter: 2013Q4

REPORT INFORMATION
  Report Type: Spontaneous
  Country: GB (occurrence: None)
  Receive Date: 20131120
  Receipt Date: 20131120
  Transmission Date: 20140711
  Serious: Yes (Hospitalization)
  Sender: FDA-Public Use
  Company Number: AG-2013-015572

PATIENT
  Sex: 0

DRUGS (10)
  1. CHLORAMBUCIL (CHLORAMBUCIL) (UNKNOWN) [Suspect]
     Indication: CHRONIC LYMPHOCYTIC LEUKAEMIA
     Route: 048
     Dates: start: 20130904
  2. ALLOPURINOL [Suspect]
     Indication: PRODUCT USED FOR UNKNOWN INDICATION
     Dosage: (300 MILLIGRAM, 1 DAYS)
     Route: 048
     Dates: start: 20130904
  3. OFATUMUMAB [Suspect]
     Indication: CHRONIC LYMPHOCYTIC LEUKAEMIA
     Dosage: (1000 MILLIGRAM, DAY 8 OF CYC 1 THEN DAY 1 EVERY 28 DAYS)
     Route: 042
     Dates: start: 20130904
  4. PARACETAMOL (PARACETAMOL) [Concomitant]
  5. CHLORPHENIRAMINE (CHLORPHENAMINE) [Concomitant]
  6. PREDNISOLONE (PREDNISOLONE) [Concomitant]
  7. ACICLOVIR (ACICLOVIR) [Concomitant]
  8. GRANULOCYTE COLONY-STIMULATING FACTOR NOS [Concomitant]
  9. DOMPERIDONE (DOMPERIDONE) [Concomitant]
  10. METOCLOPRAMIDE(METOCLOPRAMIDE) [Concomitant]

REACTIONS (2)
  - Febrile neutropenia [None]
  - Rash maculo-papular [None]
